FAERS Safety Report 21784034 (Version 4)
Quarter: 2023Q4

REPORT INFORMATION
  Report Type: Spontaneous
  Country: US (occurrence: US)
  Receive Date: 20221227
  Receipt Date: 20231128
  Transmission Date: 20240109
  Serious: No
  Sender: FDA-Public Use
  Company Number: US-PFIZER INC-PV202200128867

PATIENT
  Age: 55 Year
  Sex: Female

DRUGS (5)
  1. CIBINQO [Suspect]
     Active Substance: ABROCITINIB
     Indication: Lichenification
     Dosage: 100 MG
  2. CIBINQO [Suspect]
     Active Substance: ABROCITINIB
     Indication: Haemorrhagic disorder
  3. CIBINQO [Suspect]
     Active Substance: ABROCITINIB
     Indication: Skin erosion
  4. CIBINQO [Suspect]
     Active Substance: ABROCITINIB
     Indication: Rash erythematous
  5. CIBINQO [Suspect]
     Active Substance: ABROCITINIB
     Indication: Dermatitis atopic

REACTIONS (6)
  - Cardiac disorder [Unknown]
  - Lichenification [Not Recovered/Not Resolved]
  - Haemorrhagic disorder [Not Recovered/Not Resolved]
  - Skin erosion [Not Recovered/Not Resolved]
  - Rash erythematous [Not Recovered/Not Resolved]
  - Condition aggravated [Not Recovered/Not Resolved]
